FAERS Safety Report 23245968 (Version 2)
Quarter: 2023Q4

REPORT INFORMATION
  Report Type: Spontaneous
  Country: IT (occurrence: None)
  Receive Date: 20231130
  Receipt Date: 20231206
  Transmission Date: 20240110
  Serious: Yes (Other)
  Sender: FDA-Public Use
  Company Number: None

PATIENT
  Age: 22 Year
  Sex: Female
  Weight: 36 kg

DRUGS (3)
  1. EVRYSDI [Suspect]
     Active Substance: RISDIPLAM
     Indication: Spinal muscular atrophy
     Dosage: 5 MG DAILY VIA PEG
     Route: 065
     Dates: start: 20210714, end: 20230829
  2. AMITRIPTYLINE HYDROCHLORIDE [Concomitant]
     Active Substance: AMITRIPTYLINE HYDROCHLORIDE
     Indication: Salivary hypersecretion
     Dosage: 1 GTT IN THE EVENING
  3. OFLOXACINA [Concomitant]
     Dosage: ONE TOPICAL APPLICATION EVERY 2 DAYS IN THE EVENING

REACTIONS (4)
  - Hypokalaemia [Recovering/Resolving]
  - Haematochezia [Recovering/Resolving]
  - Dehydration [Recovering/Resolving]
  - Diarrhoea [Not Recovered/Not Resolved]

NARRATIVE: CASE EVENT DATE: 20230807
